FAERS Safety Report 16315192 (Version 4)
Quarter: 2020Q1

REPORT INFORMATION
  Report Type: Spontaneous
  Country: US (occurrence: US)
  Receive Date: 20190515
  Receipt Date: 20200227
  Transmission Date: 20200409
  Serious: No
  Sender: FDA-Public Use
  Company Number: US-SA-2018SA120889

PATIENT
  Age: 59 Year
  Sex: Female

DRUGS (7)
  1. DUPIXENT [Suspect]
     Active Substance: DUPILUMAB
     Dosage: 300 MG,QOW
     Route: 058
     Dates: start: 201711
  2. DUPIXENT [Suspect]
     Active Substance: DUPILUMAB
     Dosage: UNK, UNK
     Route: 065
     Dates: start: 201804
  3. DUPIXENT [Suspect]
     Active Substance: DUPILUMAB
     Dosage: 200 MG
     Route: 058
     Dates: start: 20171129
  4. LIPITOR [Concomitant]
     Active Substance: ATORVASTATIN CALCIUM
     Dosage: UNK
  5. DUPIXENT [Suspect]
     Active Substance: DUPILUMAB
     Dosage: 200 MG, EVERY 30 DAYS
     Route: 058
     Dates: start: 20191021
  6. LIPITOR [Concomitant]
     Active Substance: ATORVASTATIN CALCIUM
     Dosage: UNK UNK,UNK
     Route: 065
  7. DUPIXENT [Suspect]
     Active Substance: DUPILUMAB
     Indication: DERMATITIS ATOPIC
     Dosage: 600 MG,1X
     Route: 058
     Dates: start: 201711, end: 201711

REACTIONS (10)
  - Photophobia [Unknown]
  - Eye pruritus [Unknown]
  - Eye discharge [Unknown]
  - Arthralgia [Unknown]
  - Weight increased [Unknown]
  - Conjunctivitis [Unknown]
  - Eye irritation [Unknown]
  - Product dose omission [Unknown]
  - Hunger [Unknown]
  - Product use issue [Unknown]

NARRATIVE: CASE EVENT DATE: 20190508
